FAERS Safety Report 6960507-X (Version None)
Quarter: 2010Q3

REPORT INFORMATION
  Report Type: 
  Country: None (occurrence: None)
  Receive Date: 20100901
  Receipt Date: 20100823
  Transmission Date: 20110219
  Serious: Yes (Other)
  Sender: FDA-Public Use
  Company Number: US-ASTRAZENECA-2010SE17732

PATIENT
  Age: 82 Year
  Sex: Female
  Weight: 68 kg

DRUGS (15)
  1. NEXIUM [Suspect]
     Indication: GASTROOESOPHAGEAL REFLUX DISEASE
     Route: 048
  2. NEXIUM [Suspect]
     Indication: BARRETT'S OESOPHAGUS
     Route: 048
  3. ARIMIDEX [Suspect]
     Indication: BREAST CANCER
     Route: 048
     Dates: start: 20100501
  4. FUROSEMIDE [Concomitant]
  5. AMARYL [Concomitant]
  6. SYNTHROID [Concomitant]
  7. ASPIRIN [Concomitant]
  8. MULTI-VITAMIN [Concomitant]
  9. MIACALCIN [Concomitant]
  10. CITRACAL [Concomitant]
  11. CALCIUM W/D [Concomitant]
  12. AVAPRO [Concomitant]
  13. REGLAN [Concomitant]
  14. MECLIZINE [Concomitant]
  15. METOCLOPRAMIDE [Concomitant]
     Route: 065

REACTIONS (4)
  - BLADDER CANCER [None]
  - BREAST CANCER [None]
  - COUGH [None]
  - DYSPEPSIA [None]
